FAERS Safety Report 8546546-6 (Version None)
Quarter: 2012Q3

REPORT INFORMATION
  Report Type: 
  Country: None (occurrence: None)
  Receive Date: 20120727
  Receipt Date: 20111221
  Transmission Date: 20120928
  Serious: No
  Sender: FDA-Public Use
  Company Number: US-ASTRAZENECA-2011SE77892

PATIENT
  Age: 36 Year
  Sex: Male
  Weight: 102.1 kg

DRUGS (5)
  1. SEROQUEL XR [Suspect]
     Indication: BIPOLAR DISORDER
     Route: 048
  2. LAMICTAL [Concomitant]
  3. KLONOPIN [Concomitant]
  4. SEROQUEL XR [Suspect]
     Dosage: AT BEDTIME
     Route: 048
  5. PEPCID [Concomitant]

REACTIONS (2)
  - SLUGGISHNESS [None]
  - ILL-DEFINED DISORDER [None]
